FAERS Safety Report 26184740 (Version 2)
Quarter: 2025Q4

REPORT INFORMATION
  Report Type: Report from Study
  Country: IL (occurrence: IL)
  Receive Date: 20251222
  Receipt Date: 20251226
  Transmission Date: 20260117
  Serious: Yes (Hospitalization)
  Sender: ABBVIE
  Company Number: IL-ABBVIE-6600461

PATIENT
  Age: 70 Year
  Sex: Male

DRUGS (3)
  1. CARBIDOPA\LEVODOPA [Suspect]
     Active Substance: CARBIDOPA\LEVODOPA
     Indication: Parkinson^s disease
     Route: 050
     Dates: start: 20130714
  2. CARBIDOPA\LEVODOPA [Suspect]
     Active Substance: CARBIDOPA\LEVODOPA
     Dosage: MORNING DOSAGE(ML): 9.0, ADDITIONAL TUBE FILING (ML): 3.0, CONTINUOUS DOSAGE (ML/H): 3.0, EXTRA D...
     Route: 050
     Dates: start: 20251116, end: 20251116
  3. CARBIDOPA\LEVODOPA [Suspect]
     Active Substance: CARBIDOPA\LEVODOPA
     Route: 050
     Dates: start: 2025

REACTIONS (3)
  - Peripheral swelling [Recovering/Resolving]
  - Enteral nutrition [Unknown]
  - Abdominal distension [Recovering/Resolving]
